FAERS Safety Report 5572898-5 (Version None)
Quarter: 2007Q4

REPORT INFORMATION
  Report Type: 
  Country: None (occurrence: None)
  Receive Date: 20071219
  Receipt Date: 20071219
  Transmission Date: 20080405
  Serious: Yes (Hospitalization)
  Sender: FDA-Public Use
  Company Number: None

PATIENT
  Age: 6 Year
  Sex: Male
  Weight: 19.5047 kg

DRUGS (1)
  1. ABILIFY [Suspect]
     Indication: AGGRESSION
     Dosage: 5 MG  ONCE PER DAY  PO
     Route: 048
     Dates: start: 20071214, end: 20071215

REACTIONS (5)
  - MUSCLE CONTRACTIONS INVOLUNTARY [None]
  - ORAL PAIN [None]
  - PAIN [None]
  - POSTURE ABNORMAL [None]
  - SOMNOLENCE [None]
